FAERS Safety Report 23657376 (Version 1)
Quarter: 2024Q1

REPORT INFORMATION
  Report Type: Spontaneous
  Country: GB (occurrence: GB)
  Receive Date: 20240321
  Receipt Date: 20240321
  Transmission Date: 20240409
  Serious: Yes (Other)
  Sender: FDA-Public Use
  Company Number: None

PATIENT
  Age: 27 Year
  Sex: Female
  Weight: 62 kg

DRUGS (19)
  1. SULFASALAZINE [Suspect]
     Active Substance: SULFASALAZINE
     Dosage: 500MG
     Route: 048
     Dates: start: 20240219, end: 20240315
  2. BISACODYL [Concomitant]
     Active Substance: BISACODYL
     Dosage: TAKE ONE AT NIGHT INCREASING AS NEEDED TO FOUR ...
     Route: 048
     Dates: start: 20231229, end: 20240126
  3. BUTYLSCOPOLAMINE BROMIDE [Concomitant]
     Active Substance: BUTYLSCOPOLAMINE BROMIDE
     Dosage: 2 DF 4X/DAY
     Route: 048
     Dates: start: 20231229, end: 20240105
  4. COCODAMOL [Concomitant]
     Active Substance: ACETAMINOPHEN\CODEINE PHOSPHATE
     Indication: Pain
     Dosage: ONE OR TWO TO BE TAKEN UP TO FOUR TIMES A DAY AS REQUIRED FOR RELIEF OF FOR PAIN
     Route: 048
     Dates: start: 20240227, end: 20240310
  5. DULOXETINE [Concomitant]
     Active Substance: DULOXETINE
     Dosage: 1 DF 2X/DAY
     Route: 048
     Dates: start: 20231011, end: 20240110
  6. FEXOFENADINE [Concomitant]
     Active Substance: FEXOFENADINE HYDROCHLORIDE
     Route: 048
     Dates: start: 20240315
  7. FOLIC ACID [Concomitant]
     Active Substance: FOLIC ACID
     Dosage: 1 DF
     Route: 048
     Dates: start: 20230913
  8. BECLOMETHASONE\FORMOTEROL [Concomitant]
     Active Substance: BECLOMETHASONE\FORMOTEROL
     Indication: Asthma
     Dosage: 2 DF 2X/DAY
     Route: 055
     Dates: start: 20231113
  9. CHOLECALCIFEROL [Concomitant]
     Active Substance: CHOLECALCIFEROL
     Dosage: 2 DF 1X/DAY
     Route: 048
     Dates: start: 20230329
  10. LANSOPRAZOLE [Concomitant]
     Active Substance: LANSOPRAZOLE
     Dosage: 1 DF 1X/DAY
     Dates: start: 20231003
  11. LINACLOTIDE [Concomitant]
     Active Substance: LINACLOTIDE
     Dosage: 1 DF, 1X/DAY
     Route: 048
     Dates: start: 20240228
  12. MONTELUKAST [Concomitant]
     Active Substance: MONTELUKAST SODIUM
     Indication: Chest discomfort
     Dosage: 1 DF 1X/DAY AT NIGHT
     Route: 048
     Dates: start: 20231017
  13. NAPROXEN [Concomitant]
     Active Substance: NAPROXEN
     Indication: Analgesic therapy
     Dosage: 1 DF, 2X/DAY
     Route: 048
     Dates: start: 20240227
  14. PENICILLIN V [Concomitant]
     Active Substance: PENICILLIN V
     Indication: Infection
     Dosage: 2 DF 4X/DAY
     Route: 048
     Dates: start: 20240116, end: 20240126
  15. ALBUTEROL [Concomitant]
     Active Substance: ALBUTEROL
     Dosage: 2 DF, AS NEEDED
     Route: 055
     Dates: start: 20240219, end: 20240220
  16. SERTRALINE [Concomitant]
     Active Substance: SERTRALINE HYDROCHLORIDE
     Indication: Depressed mood
     Dosage: 150 MG, 1X/DAY
     Route: 048
     Dates: start: 20240304
  17. SPIRIVA [Concomitant]
     Active Substance: TIOTROPIUM BROMIDE MONOHYDRATE
     Dosage: 2 DF, 1X/DAY
     Route: 055
     Dates: start: 20240221
  18. SUMATRIPTAN [Concomitant]
     Active Substance: SUMATRIPTAN
     Dosage: AS DIRECTED
     Dates: start: 20231002
  19. TRAMADOL [Concomitant]
     Active Substance: TRAMADOL\TRAMADOL HYDROCHLORIDE
     Dosage: 1 DF 2X/DAY
     Route: 048
     Dates: start: 20240110, end: 20240124

REACTIONS (2)
  - Skin reaction [Recovering/Resolving]
  - Chest discomfort [Recovering/Resolving]

NARRATIVE: CASE EVENT DATE: 20240315
